FAERS Safety Report 5323502-2 (Version None)
Quarter: 2007Q2

REPORT INFORMATION
  Report Type: 
  Country: None (occurrence: None)
  Receive Date: 20070514
  Receipt Date: 20070502
  Transmission Date: 20071010
  Serious: Yes (Disabling)
  Sender: FDA-Public Use
  Company Number: PHHO2007IT07752

PATIENT
  Age: 48 Year
  Sex: Female
  Weight: 48 kg

DRUGS (3)
  1. ZOLEDRONATE [Suspect]
     Indication: METASTASES TO BONE
     Dosage: 4MG EVERY 3 MONTHS
     Route: 042
     Dates: start: 20061023, end: 20070115
  2. VITAMIN D [Concomitant]
  3. CALCIUM CHLORIDE [Concomitant]

REACTIONS (3)
  - JAW DISORDER [None]
  - OSTEONECROSIS [None]
  - SWELLING [None]
